FAERS Safety Report 10648843 (Version 1)
Quarter: 2014Q4

REPORT INFORMATION
  Report Type: Spontaneous
  Country: FR (occurrence: FR)
  Receive Date: 20141212
  Receipt Date: 20141212
  Transmission Date: 20150529
  Serious: Yes (Hospitalization)
  Sender: FDA-Public Use
  Company Number: FR-SA-2014SA169101

PATIENT
  Age: 67 Year
  Sex: Female

DRUGS (11)
  1. ENDOXAN [Suspect]
     Active Substance: CYCLOPHOSPHAMIDE
     Indication: AMYLOIDOSIS
     Dosage: ENDOXAN 500 MG, POWDER FOR INJECTABLE SOLUTION, DOSE: CYCLE
     Route: 042
     Dates: start: 20140908
  2. LASILIX [Suspect]
     Active Substance: FUROSEMIDE
     Dosage: LASILIX 40 MG, COMPRIME SECABLE, LONG TERM THERAPY, DOSE: 2 DF, 2 IN 1 DAY
     Route: 048
  3. VELCADE [Suspect]
     Active Substance: BORTEZOMIB
     Indication: AMYLOIDOSIS
     Dosage: DOSE: CYCLE
     Route: 042
     Dates: start: 20141014
  4. ENDOXAN [Suspect]
     Active Substance: CYCLOPHOSPHAMIDE
     Indication: AMYLOIDOSIS
     Dosage: ENDOXAN 500 MG, POWDER FOR INJECTABLE SOLUTION, DOSE: CYCLE
     Route: 042
     Dates: start: 20141014
  5. BACTRIM [Suspect]
     Active Substance: SULFAMETHOXAZOLE\TRIMETHOPRIM
     Dosage: 0.5 TABLET ON MORNING MONDAY WEDNESDAY FRIDAY
     Route: 048
  6. ZELITREX [Suspect]
     Active Substance: VALACYCLOVIR HYDROCHLORIDE
     Dosage: ZELITREX 500 MG, COATED TABLET, DOSE: 1 DF, 1 DAY
     Route: 048
  7. DEXAMETHASONE. [Suspect]
     Active Substance: DEXAMETHASONE
     Indication: AMYLOIDOSIS
     Dosage: DOSE: CYCLE
     Route: 048
     Dates: start: 20140908
  8. DEXAMETHASONE. [Suspect]
     Active Substance: DEXAMETHASONE
     Indication: AMYLOIDOSIS
     Dosage: DOSE: CYCLE
     Route: 048
     Dates: start: 20141014
  9. VELCADE [Suspect]
     Active Substance: BORTEZOMIB
     Indication: AMYLOIDOSIS
     Dosage: DOSE: CYCLE
     Route: 042
     Dates: start: 20140908
  10. DIFFU K [Concomitant]
     Active Substance: POTASSIUM CHLORIDE
     Dosage: LONG TERM
  11. CLAMOXYL [Suspect]
     Active Substance: AMOXICILLIN\CLAVULANIC ACID
     Dosage: CLAMOXYL 500 MG, CAPSULE, DOSE: 1 DF, 2 IN 1 DAY
     Route: 048

REACTIONS (2)
  - Pulmonary embolism [Recovered/Resolved with Sequelae]
  - Chest pain [Recovered/Resolved with Sequelae]

NARRATIVE: CASE EVENT DATE: 20141019
